FAERS Safety Report 10121076 (Version 1)
Quarter: 2014Q2

REPORT INFORMATION
  Report Type: Spontaneous
  Country: US (occurrence: US)
  Receive Date: 20140425
  Receipt Date: 20140425
  Transmission Date: 20141212
  Serious: Yes (Other)
  Sender: FDA-Public Use
  Company Number: US-JNJFOC-20140416984

PATIENT
  Age: 22 Year
  Sex: Female

DRUGS (4)
  1. TOPAMAX [Suspect]
     Indication: DEPRESSION
     Route: 048
  2. TOPAMAX [Suspect]
     Indication: ANXIETY
     Route: 048
  3. Z-PAK [Suspect]
     Indication: GENITOURINARY TRACT INFECTION
     Route: 048
  4. MACROBID (NITROFURANTOIN) [Suspect]
     Indication: DYSURIA
     Route: 048

REACTIONS (2)
  - Exposure during pregnancy [Recovered/Resolved]
  - Foetal death [Recovered/Resolved]
